FAERS Safety Report 21885006 (Version 3)
Quarter: 2025Q3

REPORT INFORMATION
  Report Type: Spontaneous
  Country: EU (occurrence: EU)
  Receive Date: 20230119
  Receipt Date: 20250813
  Transmission Date: 20251021
  Serious: Yes (Other)
  Sender: MERCK SHARP & DOHME LLC
  Company Number: None

PATIENT
  Age: 69 Year
  Sex: Male
  Weight: 114 kg

DRUGS (10)
  1. SITAGLIPTIN [Suspect]
     Active Substance: SITAGLIPTIN
     Indication: Diabetes mellitus
  2. SITAGLIPTIN [Suspect]
     Active Substance: SITAGLIPTIN
     Indication: Diabetes mellitus
  3. ZETIA [Suspect]
     Active Substance: EZETIMIBE
     Indication: Product used for unknown indication
  4. ROSUVASTATIN [Suspect]
     Active Substance: ROSUVASTATIN
     Indication: Product used for unknown indication
  5. FENOFIBRATE [Suspect]
     Active Substance: FENOFIBRATE
     Indication: Product used for unknown indication
  6. METFORMIN [Suspect]
     Active Substance: METFORMIN HYDROCHLORIDE
     Indication: Diabetes mellitus
  7. TELMISARTAN [Concomitant]
     Active Substance: TELMISARTAN
  8. BISOPROLOL [Concomitant]
     Active Substance: BISOPROLOL
  9. SITAGLIPTIN PHOSPHATE [Suspect]
     Active Substance: SITAGLIPTIN PHOSPHATE
     Indication: Diabetes mellitus
  10. SITAGLIPTIN PHOSPHATE [Suspect]
     Active Substance: SITAGLIPTIN PHOSPHATE
     Indication: Diabetes mellitus

REACTIONS (2)
  - Diabetes mellitus inadequate control [Unknown]
  - Product dose omission in error [Unknown]

NARRATIVE: CASE EVENT DATE: 20210101
